FAERS Safety Report 14236178 (Version 1)
Quarter: 2017Q4

REPORT INFORMATION
  Report Type: Spontaneous
  Country: CZ (occurrence: CZ)
  Receive Date: 20171129
  Receipt Date: 20171129
  Transmission Date: 20180321
  Serious: Yes (Hospitalization)
  Sender: FDA-Public Use
  Company Number: PHHY2017CZ172785

PATIENT
  Age: 81 Year
  Sex: Female

DRUGS (4)
  1. CEFTRIAXONE. [Suspect]
     Active Substance: CEFTRIAXONE
     Indication: SEPSIS
     Route: 065
  2. CEFTRIAXONE. [Suspect]
     Active Substance: CEFTRIAXONE
     Indication: TRACHEOBRONCHITIS
  3. OXACILLIN [Suspect]
     Active Substance: OXACILLIN SODIUM
     Indication: TRACHEOBRONCHITIS
  4. OXACILLIN [Suspect]
     Active Substance: OXACILLIN SODIUM
     Indication: SEPSIS
     Dosage: UNK
     Route: 065

REACTIONS (2)
  - Erythema [Unknown]
  - Dermatitis bullous [Unknown]
